FAERS Safety Report 8316110 (Version 2)
Quarter: 2013Q2

REPORT INFORMATION
  Report Type: Spontaneous
  Country: US (occurrence: US)
  Receive Date: 20111229
  Receipt Date: 20130424
  Transmission Date: 20140414
  Serious: Yes (Disabling, Other)
  Sender: FDA-Public Use
  Company Number: US-ASTRAZENECA-2011SE77838

PATIENT
  Age: 99 Year
  Sex: Female

DRUGS (2)
  1. SYMBICORT PMDI [Suspect]
     Route: 055
  2. ALBUTEROL [Concomitant]

REACTIONS (4)
  - Eye disorder [Unknown]
  - Retinal vein occlusion [Unknown]
  - Glaucoma [Unknown]
  - Malaise [Unknown]
